FAERS Safety Report 13310422 (Version 4)
Quarter: 2022Q4

REPORT INFORMATION
  Report Type: Spontaneous
  Country: US (occurrence: US)
  Receive Date: 20170309
  Receipt Date: 20221020
  Transmission Date: 20230112
  Serious: Yes (Other)
  Sender: FDA-Public Use
  Company Number: US-JNJFOC-20170202640

PATIENT
  Age: 27 Year
  Sex: Male

DRUGS (4)
  1. INVEGA [Suspect]
     Active Substance: PALIPERIDONE
     Indication: Bipolar disorder
     Route: 048
     Dates: start: 20110301, end: 2015
  2. INVEGA [Suspect]
     Active Substance: PALIPERIDONE
     Indication: Depression
     Dosage: 3 MG TO 9 MG
     Route: 048
     Dates: start: 201103, end: 201503
  3. INVEGA [Suspect]
     Active Substance: PALIPERIDONE
     Indication: Post-traumatic stress disorder
  4. INVEGA [Suspect]
     Active Substance: PALIPERIDONE
     Indication: Anxiety

REACTIONS (3)
  - Abnormal weight gain [Unknown]
  - Emotional disorder [Unknown]
  - Gynaecomastia [Recovering/Resolving]

NARRATIVE: CASE EVENT DATE: 20110601
